FAERS Safety Report 8918955 (Version 1)
Quarter: 2012Q4

REPORT INFORMATION
  Report Type: 
  Country: US (occurrence: US)
  Receive Date: 20121121
  Receipt Date: 20121121
  Transmission Date: 20130627
  Serious: No
  Sender: FDA-Public Use
  Company Number: US-ASTRAZENECA-2012SE22990

PATIENT
  Age: 61 Year
  Sex: Female
  Weight: 72.6 kg

DRUGS (4)
  1. NEXIUM [Suspect]
     Indication: GASTROOESOPHAGEAL REFLUX DISEASE
     Route: 048
  2. EFFEXOR XR [Concomitant]
     Indication: MIGRAINE
  3. ZANAFLEX [Concomitant]
     Indication: MUSCLE SPASMS
  4. GABAPENTIN [Concomitant]
     Indication: NERVE INJURY

REACTIONS (3)
  - Gastrooesophageal reflux disease [Unknown]
  - Choking [Unknown]
  - Intentional drug misuse [Unknown]
